FAERS Safety Report 19510803 (Version 1)
Quarter: 2021Q3

REPORT INFORMATION
  Report Type: Spontaneous
  Country: GB (occurrence: GB)
  Receive Date: 20210709
  Receipt Date: 20210709
  Transmission Date: 20211014
  Serious: Yes (Other)
  Sender: FDA-Public Use
  Company Number: GB-ADVANZ PHARMA-202107004823

PATIENT

DRUGS (6)
  1. PENTASA [Concomitant]
     Active Substance: MESALAMINE
     Indication: ILL-DEFINED DISORDER
     Dosage: UNK
     Dates: start: 202012
  2. PREDNISOLONE. [Suspect]
     Active Substance: PREDNISOLONE
     Indication: COLITIS ULCERATIVE
     Dosage: 30 MG, (30MG CASCADING DOWN TO 5MG OVER 6 WEEKS)
     Route: 048
     Dates: start: 20210609
  3. NAPROXEN. [Concomitant]
     Active Substance: NAPROXEN
     Indication: ILL-DEFINED DISORDER
     Dosage: UNK
     Dates: start: 20210416, end: 20210430
  4. PREDNISOLONE. [Suspect]
     Active Substance: PREDNISOLONE
     Dosage: 5 MG, (30MG CASCADING DOWN TO 5MG OVER 6 WEEKS)
  5. CALCIFEROL [Concomitant]
     Indication: ILL-DEFINED DISORDER
  6. OMEPRAZOL [Concomitant]
     Active Substance: OMEPRAZOLE
     Indication: ILL-DEFINED DISORDER
     Dosage: UNK
     Dates: start: 20210416

REACTIONS (6)
  - Nervousness [Not Recovered/Not Resolved]
  - Feeling abnormal [Not Recovered/Not Resolved]
  - Taste disorder [Not Recovered/Not Resolved]
  - Visual impairment [Not Recovered/Not Resolved]
  - Palpitations [Not Recovered/Not Resolved]
  - Dry mouth [Not Recovered/Not Resolved]

NARRATIVE: CASE EVENT DATE: 20210609
